FAERS Safety Report 5962736-0 (Version None)
Quarter: 2008Q4

REPORT INFORMATION
  Report Type: 
  Country: None (occurrence: None)
  Receive Date: 20081120
  Receipt Date: 20081106
  Transmission Date: 20090506
  Serious: Yes (Hospitalization)
  Sender: FDA-Public Use
  Company Number: 2008S1019968

PATIENT
  Age: 76 Year
  Sex: Male

DRUGS (5)
  1. PLAVIX [Suspect]
     Indication: CARDIAC ASSISTANCE DEVICE USER
     Dosage: ORAL
     Route: 048
     Dates: start: 20040701, end: 20070120
  2. PLAVIX [Suspect]
     Indication: IMPLANTABLE DEFIBRILLATOR INSERTION
     Dosage: ORAL
     Route: 048
     Dates: start: 20040701, end: 20070120
  3. INDOMETHACIN [Suspect]
     Indication: GOUT
     Dosage: 50 MG; 3 TIMES A DAY; ORAL
     Route: 048
     Dates: start: 20070110
  4. GLYBURIDE [Concomitant]
  5. ANTIHYPERTENSIVES [Concomitant]

REACTIONS (7)
  - ABDOMINAL DISCOMFORT [None]
  - ASTHENIA [None]
  - DRUG INTERACTION [None]
  - FULL BLOOD COUNT DECREASED [None]
  - HAEMATEMESIS [None]
  - HAEMORRHAGE [None]
  - HYPOPHAGIA [None]
